FAERS Safety Report 6898393-9 (Version None)
Quarter: 2010Q3

REPORT INFORMATION
  Report Type: 
  Country: None (occurrence: None)
  Receive Date: 20100729
  Receipt Date: 20100726
  Transmission Date: 20110219
  Serious: Yes (Death)
  Sender: FDA-Public Use
  Company Number: AE-710-241

PATIENT
  Age: 35 Year
  Sex: Female

DRUGS (1)
  1. LIDODERM [Suspect]
     Indication: ARTHRALGIA
     Dosage: DAILY (DOSE UNKNOWN)

REACTIONS (1)
  - DEATH [None]
